FAERS Safety Report 26119050 (Version 1)
Quarter: 2025Q4

REPORT INFORMATION
  Report Type: Spontaneous
  Country: US (occurrence: US)
  Receive Date: 20251204
  Receipt Date: 20251204
  Transmission Date: 20260118
  Serious: Yes (Life-Threatening, Hospitalization, Other)
  Sender: ACCORD
  Company Number: US-MLMSERVICE-20240411-PI021441-00203-1

PATIENT
  Age: 68 Year
  Sex: Female

DRUGS (3)
  1. LISINOPRIL [Suspect]
     Active Substance: LISINOPRIL
     Indication: Renal disorder prophylaxis
     Dosage: RECENTLY STARTED
  2. FUROSEMIDE [Concomitant]
     Active Substance: FUROSEMIDE
  3. LISINOPRIL [Suspect]
     Active Substance: LISINOPRIL
     Indication: Renal disorder prophylaxis
     Dosage: DOSE WAS REDUCED

REACTIONS (4)
  - Hypoaldosteronism [Recovering/Resolving]
  - Acute kidney injury [Recovering/Resolving]
  - Hyperkalaemia [Recovered/Resolved]
  - Electrocardiogram T wave peaked [Unknown]
